FAERS Safety Report 10757367 (Version 1)
Quarter: 2015Q1

REPORT INFORMATION
  Report Type: Spontaneous
  Country: US (occurrence: None)
  Receive Date: 20150130
  Receipt Date: 20150130
  Transmission Date: 20150721
  Serious: Yes (Other)
  Sender: FDA-Public Use
  Company Number: UCM201501-000049

PATIENT
  Age: 46 Year
  Sex: Male

DRUGS (2)
  1. CLONIDINE HCL [Suspect]
     Active Substance: CLONIDINE HYDROCHLORIDE
     Indication: HYPERTENSION
  2. YOHIMBINE [Suspect]
     Active Substance: YOHIMBINE
     Indication: ERECTILE DYSFUNCTION

REACTIONS (2)
  - Hypertensive crisis [None]
  - Drug interaction [None]
